FAERS Safety Report 12696590 (Version 1)
Quarter: 2016Q3

REPORT INFORMATION
  Report Type: Spontaneous
  Country: JP (occurrence: JP)
  Receive Date: 20160830
  Receipt Date: 20160830
  Transmission Date: 20161109
  Serious: Yes (Other)
  Sender: FDA-Public Use
  Company Number: JP-GLENMARK PHARMACEUTICALS INC, USA.-2016GMK024088

PATIENT
  Age: 63 Year
  Sex: Female

DRUGS (4)
  1. PREDNISOLONE. [Suspect]
     Active Substance: PREDNISOLONE
     Indication: SCLERITIS
     Dosage: UNK
  2. BETAMETHASONE DIPROPIONATE. [Suspect]
     Active Substance: BETAMETHASONE DIPROPIONATE
     Indication: SCLERITIS
     Dosage: UNK
     Route: 061
  3. PREDNISOLONE. [Suspect]
     Active Substance: PREDNISOLONE
     Indication: POLYCHONDRITIS
     Dosage: 7 MG, UNK
     Route: 048
  4. BETAMETHASONE DIPROPIONATE. [Suspect]
     Active Substance: BETAMETHASONE DIPROPIONATE
     Indication: POLYCHONDRITIS
     Dosage: UNK, BID
     Route: 061

REACTIONS (1)
  - Glaucoma [Recovered/Resolved]
